FAERS Safety Report 4890650-0 (Version None)
Quarter: 2006Q1

REPORT INFORMATION
  Report Type: 
  Country: None (occurrence: None)
  Receive Date: 20060125
  Receipt Date: 20050818
  Transmission Date: 20060701
  Serious: Yes (Other)
  Sender: FDA-Public Use
  Company Number: US-BRISTOL-MYERS SQUIBB COMPANY-13081773

PATIENT
  Age: 31 Year
  Sex: Female

DRUGS (1)
  1. CARDIOLITE [Suspect]
     Indication: CARDIAC STRESS TEST
     Dates: start: 20050811, end: 20050811

REACTIONS (4)
  - DYSPHONIA [None]
  - NAUSEA [None]
  - THROAT TIGHTNESS [None]
  - WHEEZING [None]
